FAERS Safety Report 4427530-0 (Version None)
Quarter: 2004Q3

REPORT INFORMATION
  Report Type: 
  Country: None (occurrence: None)
  Receive Date: 20040812
  Receipt Date: 20040729
  Transmission Date: 20050211
  Serious: Yes (Hospitalization)
  Sender: FDA-Public Use
  Company Number: 2004-BP-06338BP

PATIENT
  Age: 21 Month
  Sex: Female

DRUGS (2)
  1. FLOMAX [Suspect]
     Indication: ACCIDENTAL EXPOSURE
     Dosage: 1.6 MG (0.4 MG, 4 CAPSULES ONCE), PO
     Route: 048
     Dates: start: 20040727, end: 20040727
  2. ACTIVATED CHARCOAL [Suspect]
     Indication: ACCIDENTAL EXPOSURE

REACTIONS (3)
  - ACCIDENTAL EXPOSURE [None]
  - DIARRHOEA [None]
  - URINE OUTPUT DECREASED [None]
